FAERS Safety Report 25214387 (Version 2)
Quarter: 2025Q4

REPORT INFORMATION
  Report Type: Spontaneous
  Country: US (occurrence: US)
  Receive Date: 20250418
  Receipt Date: 20251204
  Transmission Date: 20260117
  Serious: Yes (Other)
  Sender: PFIZER
  Company Number: US-PFIZER INC-PV202500046054

PATIENT
  Age: 61 Year
  Sex: Female

DRUGS (1)
  1. IBRANCE [Suspect]
     Active Substance: PALBOCICLIB
     Indication: Breast cancer female
     Dosage: 125 MG, 1X/DAY

REACTIONS (6)
  - Weight decreased [Recovering/Resolving]
  - Oral mucosal blistering [Recovered/Resolved]
  - Muscle spasms [Recovering/Resolving]
  - Diarrhoea [Unknown]
  - Headache [Unknown]
  - Malaise [Unknown]
